FAERS Safety Report 14941240 (Version 1)
Quarter: 2018Q2

REPORT INFORMATION
  Report Type: Other
  Country: US (occurrence: US)
  Receive Date: 20180525
  Receipt Date: 20180525
  Transmission Date: 20180711
  Serious: No
  Sender: FDA-Public Use
  Company Number: US-GREER LABORATORIES, INC.-2048484

PATIENT
  Age: 46 Year
  Sex: Female

DRUGS (30)
  1. STANDARDIZED CAT HAIR [Concomitant]
     Active Substance: FELIS CATUS HAIR
     Route: 050
  2. POLLENS - TREES, CEDAR, RED JUNIPERUS VIRGINIANA [Concomitant]
     Active Substance: JUNIPERUS VIRGINIANA POLLEN
     Route: 050
  3. STANDARDIZED MITE, DERMATOPHAGOIDES PTERONYSSINUS [Suspect]
     Active Substance: DERMATOPHAGOIDES PTERONYSSINUS
     Route: 050
  4. POLLENS - TREES, ELM, AMERICAN ULMUS AMERICANA [Concomitant]
     Active Substance: ULMUS AMERICANA POLLEN
     Route: 050
  5. MULTIVITAMIN [Concomitant]
     Active Substance: VITAMINS
     Route: 048
     Dates: start: 201603
  6. MICROGESTIN [Concomitant]
     Active Substance: ETHINYL ESTRADIOL\NORETHINDRONE ACETATE
     Route: 048
     Dates: start: 2001
  7. CLADOSPORIUM HERBARUM. [Concomitant]
     Active Substance: CLADOSPORIUM HERBARUM
     Route: 050
  8. EASTERN SYCAMORE POLLEN [Suspect]
     Active Substance: PLATANUS OCCIDENTALIS POLLEN
     Route: 050
  9. EASTERN SYCAMORE POLLEN [Suspect]
     Active Substance: PLATANUS OCCIDENTALIS POLLEN
     Route: 050
  10. POLLENS - TREES, CEDAR, MOUNTAIN JUNIPERUS ASHEI [Concomitant]
     Active Substance: JUNIPERUS ASHEI POLLEN
     Route: 050
  11. MIXED RAGWEED [Suspect]
     Active Substance: AMBROSIA ARTEMISIIFOLIA POLLEN\AMBROSIA TRIFIDA POLLEN
     Route: 050
  12. DOG EPITHELIUM [Concomitant]
     Active Substance: CANIS LUPUS FAMILIARIS SKIN
     Route: 050
  13. ASPERGILLUS FUMIGATUS. [Concomitant]
     Active Substance: ASPERGILLUS FUMIGATUS
     Route: 050
  14. CLADOSPORIUM HERBARUM. [Concomitant]
     Active Substance: CLADOSPORIUM HERBARUM
     Route: 050
  15. EASTERN OAK MIX [Concomitant]
     Route: 050
  16. BOX ELDER [Concomitant]
     Active Substance: ACER NEGUNDO POLLEN
     Route: 050
  17. BIRCH MIX [Concomitant]
     Active Substance: BETULA NIGRA POLLEN\BETULA POPULIFOLIA POLLEN
     Route: 050
  18. COMMON WEED MIX [Concomitant]
     Route: 050
  19. EASTERN COTTONWOOD [Concomitant]
     Active Substance: POPULUS DELTOIDES POLLEN
     Route: 050
  20. MIXED RAGWEED [Suspect]
     Active Substance: AMBROSIA ARTEMISIIFOLIA POLLEN\AMBROSIA TRIFIDA POLLEN
     Route: 050
  21. POSITIVE SKIN TEST CONTROL - HISTAMINE [Concomitant]
     Active Substance: HISTAMINE
     Route: 050
  22. 9 SOUTHERN GRASS MIX [Suspect]
     Active Substance: AGROSTIS GIGANTEA POLLEN\ANTHOXANTHUM ODORATUM\CYNODON DACTYLON\DACTYLIS GLOMERATA\FESTUCA PRATENSIS\LOLIUM PERENNE\PHLEUM PRATENSE\POA PRATENSIS\SORGHUM HALEPENSE POLLEN
     Route: 050
  23. ASH MIX, GREEN/WHITE POLLEN [Concomitant]
     Active Substance: FRAXINUS AMERICANA POLLEN\FRAXINUS PENNSYLVANICA POLLEN
     Route: 050
  24. NEGATIVE CONTROL SCRATCH [Concomitant]
     Route: 050
  25. LORATADINE. [Concomitant]
     Active Substance: LORATADINE
     Route: 048
     Dates: start: 201604
  26. ALLERGENIC EXTRACT- MITE, DERMATOPHAGOIDES FARINAE [Suspect]
     Active Substance: DERMATOPHAGOIDES FARINAE
     Indication: SKIN TEST
     Route: 050
  27. INSECTS (WHOLE BODY) COCKROACH MIX [Concomitant]
     Active Substance: BLATELLA GERMANICA\PERIPLANETA AMERICANA
     Route: 050
  28. ALTERNARIA ALTERNATA. [Concomitant]
     Active Substance: ALTERNARIA ALTERNATA
     Route: 050
  29. POLLENS - TREES, ELM, AMERICAN ULMUS AMERICANA [Concomitant]
     Active Substance: ULMUS AMERICANA POLLEN
     Route: 050
  30. COMMON MUGWORT POLLEN [Concomitant]
     Active Substance: ARTEMISIA VULGARIS POLLEN
     Route: 050

REACTIONS (1)
  - Administration site swelling [Unknown]

NARRATIVE: CASE EVENT DATE: 20161003
